FAERS Safety Report 6568857-6 (Version None)
Quarter: 2010Q1

REPORT INFORMATION
  Report Type: 
  Country: None (occurrence: None)
  Receive Date: 20100201
  Receipt Date: 20100201
  Transmission Date: 20100710
  Serious: Yes (Death)
  Sender: FDA-Public Use
  Company Number: None

PATIENT
  Sex: Male
  Weight: 75.2 kg

DRUGS (9)
  1. RECOTHROM [Suspect]
     Indication: OPERATIVE HAEMORRHAGE
     Dosage: 1 TO 1 AND 1/2 ML ONCE THROUGH BIOPSY TRACT
     Dates: start: 20080826
  2. ATENOLOL [Concomitant]
  3. ADVIL [Concomitant]
  4. PROPOXYPHENE [Concomitant]
  5. SPRIVA [Concomitant]
  6. LOVAZA [Concomitant]
  7. SYMBICORT [Concomitant]
  8. FENTANYL [Concomitant]
  9. VERSED [Concomitant]

REACTIONS (4)
  - CEREBROVASCULAR ACCIDENT [None]
  - CONVULSION [None]
  - HAEMORRHAGE [None]
  - POST PROCEDURAL COMPLICATION [None]
